FAERS Safety Report 17574120 (Version 3)
Quarter: 2020Q2

REPORT INFORMATION
  Report Type: Spontaneous
  Country: US (occurrence: US)
  Receive Date: 20200323
  Receipt Date: 20200409
  Transmission Date: 20200713
  Serious: Yes (Other)
  Sender: FDA-Public Use
  Company Number: US-ALLERGAN-2012318US

PATIENT
  Sex: Male
  Weight: 70.3 kg

DRUGS (25)
  1. HYTRIN [Suspect]
     Active Substance: TERAZOSIN HYDROCHLORIDE
     Indication: PROSTATOMEGALY
     Dosage: 10 MG, QD
  2. ALEVE [Concomitant]
     Active Substance: NAPROXEN SODIUM
  3. AMANTADINE. [Suspect]
     Active Substance: AMANTADINE HYDROCHLORIDE
     Dosage: 137 MG, QHS, ALTERNATING WITH 2 CAPSULES
     Route: 048
     Dates: start: 201908
  4. FLOMAX [Suspect]
     Active Substance: TAMSULOSIN HYDROCHLORIDE
     Indication: PRODUCT USED FOR UNKNOWN INDICATION
     Dosage: UNK
     Dates: start: 2018, end: 2019
  5. FLONASE [Concomitant]
     Active Substance: FLUTICASONE PROPIONATE
  6. LINZESS [Suspect]
     Active Substance: LINACLOTIDE
     Indication: PRODUCT USED FOR UNKNOWN INDICATION
     Dosage: 72 ?G
     Dates: start: 201908, end: 202001
  7. LINZESS [Suspect]
     Active Substance: LINACLOTIDE
     Dosage: 145 ?G
     Dates: start: 201908
  8. AMANTADINE. [Suspect]
     Active Substance: AMANTADINE HYDROCHLORIDE
     Dosage: 274 MG, QHS
     Route: 048
  9. ASPIRIN. [Concomitant]
     Active Substance: ASPIRIN
  10. FINASTERIDE. [Concomitant]
     Active Substance: FINASTERIDE
  11. BACTRIM DS [Concomitant]
     Active Substance: SULFAMETHOXAZOLE\TRIMETHOPRIM
  12. VITAMIN D3 [Concomitant]
     Active Substance: CHOLECALCIFEROL
  13. AMANTADINE. [Suspect]
     Active Substance: AMANTADINE HYDROCHLORIDE
     Indication: DYSKINESIA
     Dosage: 137 MG, QHS, SPORATICALLY ALTERNATING WITH 2 CAPSULES
     Route: 048
  14. AMANTADINE. [Suspect]
     Active Substance: AMANTADINE HYDROCHLORIDE
     Dosage: 274 MG, QHS, ALTERNATING WITH 1 CAPSULE
     Route: 048
     Dates: start: 201908
  15. AMANTADINE. [Suspect]
     Active Substance: AMANTADINE HYDROCHLORIDE
     Dosage: 274 MG, QHS
     Route: 048
     Dates: start: 201811
  16. AMANTADINE. [Suspect]
     Active Substance: AMANTADINE HYDROCHLORIDE
     Dosage: 137 MG, QHS
     Route: 048
     Dates: start: 20180912, end: 201811
  17. AMANTADINE. [Suspect]
     Active Substance: AMANTADINE HYDROCHLORIDE
     Dosage: 137 MG, QHS
     Route: 048
     Dates: start: 20180613, end: 20180619
  18. AMANTADINE. [Suspect]
     Active Substance: AMANTADINE HYDROCHLORIDE
     Dosage: 137 MG, QHS
     Route: 048
     Dates: end: 201908
  19. MELATONIN [Concomitant]
     Active Substance: MELATONIN
  20. VITAMIN B12 [Concomitant]
     Active Substance: CYANOCOBALAMIN
  21. AMANTADINE. [Suspect]
     Active Substance: AMANTADINE HYDROCHLORIDE
     Dosage: 137 MG, QHS
     Route: 048
     Dates: start: 201808, end: 20180912
  22. AMANTADINE. [Suspect]
     Active Substance: AMANTADINE HYDROCHLORIDE
     Dosage: 274 MG, QHS
     Route: 048
     Dates: start: 20180620, end: 201808
  23. AMANTADINE. [Suspect]
     Active Substance: AMANTADINE HYDROCHLORIDE
     Dosage: 274 MG, QHS, SPORATICALLY ALTERNATING WITH 1 CAPSULE
     Route: 048
  24. SINEMET [Concomitant]
     Active Substance: CARBIDOPA\LEVODOPA
  25. ENTACAPONE. [Concomitant]
     Active Substance: ENTACAPONE

REACTIONS (12)
  - Anal incontinence [Not Recovered/Not Resolved]
  - Urinary retention [Unknown]
  - Urinary tract infection [Unknown]
  - Insomnia [Not Recovered/Not Resolved]
  - Hypotension [Not Recovered/Not Resolved]
  - Diarrhoea [Not Recovered/Not Resolved]
  - Dysphonia [Not Recovered/Not Resolved]
  - Benign prostatic hyperplasia [Not Recovered/Not Resolved]
  - Therapeutic product effect decreased [Unknown]
  - Memory impairment [Not Recovered/Not Resolved]
  - Pain [Recovered/Resolved]
  - Product dose omission [Unknown]

NARRATIVE: CASE EVENT DATE: 2019
